FAERS Safety Report 25174652 (Version 1)
Quarter: 2025Q2

REPORT INFORMATION
  Report Type: Spontaneous
  Country: DE (occurrence: DE)
  Receive Date: 20250408
  Receipt Date: 20250408
  Transmission Date: 20250716
  Serious: No
  Sender: MYLAN
  Company Number: DE-MYLANLABS-2025M1027955

PATIENT

DRUGS (2)
  1. EPINEPHRINE HYDROCHLORIDE [Suspect]
     Active Substance: EPINEPHRINE HYDROCHLORIDE
     Indication: Product used for unknown indication
  2. EPINEPHRINE HYDROCHLORIDE [Suspect]
     Active Substance: EPINEPHRINE HYDROCHLORIDE

REACTIONS (2)
  - Product lot number issue [Unknown]
  - Product quality issue [Unknown]
